FAERS Safety Report 10918121 (Version 3)
Quarter: 2015Q3

REPORT INFORMATION
  Report Type: Spontaneous
  Country: US (occurrence: US)
  Receive Date: 20150316
  Receipt Date: 20150914
  Transmission Date: 20151125
  Serious: Yes (Other)
  Sender: FDA-Public Use
  Company Number: US-ASTELLAS-2014US019555

PATIENT
  Age: 77 Year
  Sex: Male

DRUGS (1)
  1. XTANDI [Suspect]
     Active Substance: ENZALUTAMIDE
     Indication: PROSTATE CANCER
     Route: 048
     Dates: start: 20141018

REACTIONS (11)
  - Hypertension [Recovering/Resolving]
  - Malignant neoplasm progression [Unknown]
  - Headache [Recovered/Resolved]
  - Rhinitis [Unknown]
  - Laryngitis [Unknown]
  - Dysphonia [Unknown]
  - Blood glucose increased [Recovered/Resolved]
  - Nausea [Unknown]
  - Drug ineffective [Unknown]
  - Dry mouth [Unknown]
  - Dizziness [Unknown]

NARRATIVE: CASE EVENT DATE: 20141206
